FAERS Safety Report 20111875 (Version 5)
Quarter: 2023Q1

REPORT INFORMATION
  Report Type: Spontaneous
  Country: GR (occurrence: GR)
  Receive Date: 20211125
  Receipt Date: 20230301
  Transmission Date: 20230418
  Serious: Yes (Other)
  Sender: FDA-Public Use
  Company Number: GR-CELLTRION INC.-2021GR015726

PATIENT

DRUGS (3)
  1. INFLIXIMAB [Suspect]
     Active Substance: INFLIXIMAB
     Indication: Crohn^s disease
     Dosage: 4X100MG / EVERY 8 WEEKS
     Dates: start: 20201106
  2. INFLIXIMAB [Suspect]
     Active Substance: INFLIXIMAB
     Dosage: 800MG (8*100MG) EVERY 4 WEEKS
     Route: 042
     Dates: start: 20211106, end: 20211129
  3. INFLIXIMAB [Suspect]
     Active Substance: INFLIXIMAB
     Dosage: ON 03/01/2022 THE PATIENT STATED THAT FROM NOW ON HE WILL RECEIVE 4 VIALS EVERY 8 WEEKS (400MG (4*10
     Route: 042

REACTIONS (5)
  - COVID-19 [Recovered/Resolved]
  - Intentional dose omission [Unknown]
  - Treatment delayed [Unknown]
  - Overdose [Unknown]
  - Off label use [Unknown]

NARRATIVE: CASE EVENT DATE: 20211101
